FAERS Safety Report 6025456-2 (Version None)
Quarter: 2008Q4

REPORT INFORMATION
  Report Type: 
  Country: None (occurrence: None)
  Receive Date: 20081229
  Receipt Date: 20081229
  Transmission Date: 20090506
  Serious: Yes (Other)
  Sender: FDA-Public Use
  Company Number: None

PATIENT
  Age: 34 Year
  Sex: Female
  Weight: 75.7507 kg

DRUGS (1)
  1. MIRENA [Suspect]
     Dosage: 5 YEAR DOSE
     Dates: start: 20080501, end: 20080501

REACTIONS (2)
  - ACNE [None]
  - ALOPECIA [None]
